FAERS Safety Report 9054970 (Version 1)
Quarter: 2013Q1

REPORT INFORMATION
  Report Type: Spontaneous
  Country: IE (occurrence: IE)
  Receive Date: 20130208
  Receipt Date: 20130208
  Transmission Date: 20140127
  Serious: Yes (Death)
  Sender: FDA-Public Use
  Company Number: IE-ASTRAZENECA-2013SE08357

PATIENT
  Age: 8 Month
  Sex: Female

DRUGS (3)
  1. PALIVIZUMAB [Suspect]
     Indication: SPINAL MUSCULAR ATROPHY
     Route: 030
     Dates: start: 20121017
  2. VIT D [Concomitant]
  3. INFACOL [Concomitant]

REACTIONS (1)
  - Death [Fatal]
